FAERS Safety Report 4666018-9 (Version None)
Quarter: 2005Q2

REPORT INFORMATION
  Report Type: 
  Country: None (occurrence: None)
  Receive Date: 20050517
  Receipt Date: 20050517
  Transmission Date: 20051028
  Serious: Yes (Hospitalization)
  Sender: FDA-Public Use
  Company Number: None

PATIENT

DRUGS (1)
  1. ZYVOX [Suspect]
     Dosage: 600 MG  Q12HOURS ORAL
     Route: 048

REACTIONS (1)
  - DRUG INTERACTION [None]
